FAERS Safety Report 14213118 (Version 1)
Quarter: 2017Q4

REPORT INFORMATION
  Report Type: Report from Study
  Country: US (occurrence: US)
  Receive Date: 20171122
  Receipt Date: 20171122
  Transmission Date: 20180321
  Serious: Yes (Other)
  Sender: FDA-Public Use
  Company Number: US-UCBSA-2017046311

PATIENT
  Age: 51 Year
  Sex: Female

DRUGS (1)
  1. CIMZIA [Suspect]
     Active Substance: CERTOLIZUMAB PEGOL
     Indication: RHEUMATOID ARTHRITIS
     Dosage: 400 MG, EV 2 WEEKS(QOW)
     Dates: start: 20171025, end: 20171106

REACTIONS (3)
  - Nausea [Recovered/Resolved]
  - Night sweats [Recovered/Resolved]
  - Tunnel vision [Recovered/Resolved]

NARRATIVE: CASE EVENT DATE: 20171025
